FAERS Safety Report 13114034 (Version 1)
Quarter: 2017Q1

REPORT INFORMATION
  Report Type: Spontaneous
  Country: AU (occurrence: AU)
  Receive Date: 20170113
  Receipt Date: 20170113
  Transmission Date: 20170428
  Serious: Yes (Death, Other)
  Sender: FDA-Public Use
  Company Number: AU-PFIZER INC-2017013646

PATIENT
  Age: 48 Year
  Sex: Female

DRUGS (9)
  1. MORPHINE HCL [Suspect]
     Active Substance: MORPHINE HYDROCHLORIDE
  2. ALPRAZOLAM. [Suspect]
     Active Substance: ALPRAZOLAM
     Dosage: 15
  3. MERSYNDOL /01137701/ [Suspect]
     Active Substance: ACETAMINOPHEN\CODEINE\DOXYLAMINE SUCCINATE
     Indication: PAIN
  4. LAMOTRIGINE. [Suspect]
     Active Substance: LAMOTRIGINE
  5. TARGIN [Suspect]
     Active Substance: NALOXONE HYDROCHLORIDE\OXYCODONE HYDROCHLORIDE
     Indication: PAIN
  6. GABAPENTIN. [Suspect]
     Active Substance: GABAPENTIN
  7. OXYCODONE [Suspect]
     Active Substance: OXYCODONE
     Indication: PAIN
     Dosage: UNK
     Dates: start: 20071215
  8. DIAZEPAM. [Suspect]
     Active Substance: DIAZEPAM
  9. AMITRIPTYLINE [Suspect]
     Active Substance: AMITRIPTYLINE
     Dosage: 50 MG, UNK
     Dates: start: 20071015

REACTIONS (6)
  - Myocarditis [Unknown]
  - Peripheral swelling [Unknown]
  - Completed suicide [Fatal]
  - Cerebrovascular accident [Unknown]
  - Intentional overdose [Fatal]
  - Drug dependence [Unknown]

NARRATIVE: CASE EVENT DATE: 20130226
